FAERS Safety Report 7350843-X (Version None)
Quarter: 2011Q1

REPORT INFORMATION
  Report Type: 
  Country: None (occurrence: None)
  Receive Date: 20110314
  Receipt Date: 20110310
  Transmission Date: 20110831
  Serious: No
  Sender: FDA-Public Use
  Company Number: US-PFIZER INC-2011053700

PATIENT
  Sex: Male

DRUGS (5)
  1. VIGAMOX [Interacting]
     Indication: CORNEAL LESION
     Dosage: 1 GTT, 4X/DAY
     Route: 047
     Dates: start: 20110309, end: 20110309
  2. VIGAMOX [Interacting]
     Indication: EYE INFECTION
  3. AVAPRO [Concomitant]
     Dosage: 150 MG, 1X/DAY
     Route: 048
  4. TIKOSYN [Suspect]
     Indication: TACHYCARDIA
     Dosage: 500 UG, 2X/DAY
     Route: 048
     Dates: start: 20100101
  5. COREG [Concomitant]
     Dosage: 50 MG, 2X/DAY
     Route: 048

REACTIONS (2)
  - DRUG INTERACTION [None]
  - TACHYCARDIA [None]
